FAERS Safety Report 24431121 (Version 2)
Quarter: 2024Q4

REPORT INFORMATION
  Report Type: Spontaneous
  Country: FR (occurrence: FR)
  Receive Date: 20241014
  Receipt Date: 20241204
  Transmission Date: 20250114
  Serious: No
  Sender: TOLMAR
  Company Number: FR-RECORDATI-2024007433

PATIENT
  Age: 75 Year
  Sex: Male

DRUGS (1)
  1. ELIGARD [Suspect]
     Active Substance: LEUPROLIDE ACETATE
     Indication: Prostate cancer
     Dosage: 22.5 MILLIGRAM
     Dates: start: 20240924

REACTIONS (3)
  - Intercepted product preparation error [Unknown]
  - Product reconstitution quality issue [Unknown]
  - Product physical consistency issue [Unknown]

NARRATIVE: CASE EVENT DATE: 20240924
